FAERS Safety Report 8119046-5 (Version None)
Quarter: 2011Q4

REPORT INFORMATION
  Report Type: 
  Country: None (occurrence: None)
  Receive Date: 20111227
  Receipt Date: 20111005
  Transmission Date: 20120403
  Serious: No
  Sender: FDA-Public Use
  Company Number: PHEH2011US05019

PATIENT
  Age: 51 Year
  Sex: Female

DRUGS (7)
  1. GILENYA [Suspect]
     Indication: MULTIPLE SCLEROSIS
     Dosage: 0.5 MG, QD, ORAL
     Route: 048
     Dates: start: 20110701
  2. PREVACID [Concomitant]
  3. ZETIA [Concomitant]
  4. WELCHOL [Concomitant]
  5. ASA (ACETYLSALIICYLIC ACID) [Concomitant]
  6. LIPITOR [Concomitant]
  7. ALTACE [Concomitant]

REACTIONS (2)
  - OROPHARYNGEAL PAIN [None]
  - NASAL CONGESTION [None]
